FAERS Safety Report 10993417 (Version 1)
Quarter: 2015Q2

REPORT INFORMATION
  Report Type: Spontaneous
  Country: US (occurrence: US)
  Receive Date: 20150407
  Receipt Date: 20150407
  Transmission Date: 20150821
  Serious: Yes (Hospitalization, Other)
  Sender: FDA-Public Use
  Company Number: US-AMGEN-USASP2015031733

PATIENT
  Age: 42 Year
  Sex: Female

DRUGS (2)
  1. PREDNISONE. [Suspect]
     Active Substance: PREDNISONE
     Indication: PRODUCT USED FOR UNKNOWN INDICATION
     Dosage: UNK
     Route: 065
  2. ENBREL [Suspect]
     Active Substance: ETANERCEPT
     Indication: RHEUMATOID ARTHRITIS
     Dosage: 25 MG, QWK
     Route: 065
     Dates: start: 2008, end: 2013

REACTIONS (4)
  - Rheumatoid arthritis [Not Recovered/Not Resolved]
  - Heart rate increased [Recovered/Resolved]
  - Adrenal insufficiency [Recovered/Resolved]
  - Bone tuberculosis [Recovered/Resolved]

NARRATIVE: CASE EVENT DATE: 2014
